FAERS Safety Report 17528871 (Version 2)
Quarter: 2020Q1

REPORT INFORMATION
  Report Type: Spontaneous
  Country: JP (occurrence: JP)
  Receive Date: 20200311
  Receipt Date: 20200324
  Transmission Date: 20200409
  Serious: Yes (Death, Other)
  Sender: FDA-Public Use
  Company Number: JP-OTSUKA-2020_006912

PATIENT
  Age: 75 Year
  Sex: Male
  Weight: 41 kg

DRUGS (14)
  1. MEMARY [Concomitant]
     Active Substance: MEMANTINE HYDROCHLORIDE
     Indication: PRODUCT USED FOR UNKNOWN INDICATION
     Dosage: UNK
     Route: 065
     Dates: start: 20190220, end: 20190529
  2. QUETIAPINE. [Concomitant]
     Active Substance: QUETIAPINE
     Indication: PRODUCT USED FOR UNKNOWN INDICATION
     Dosage: UNK
     Route: 065
     Dates: start: 20190320, end: 20190529
  3. PREDNISOLONE. [Concomitant]
     Active Substance: PREDNISOLONE
     Indication: PROPHYLAXIS
     Dosage: UNK
     Route: 065
  4. ABILIFY [Suspect]
     Active Substance: ARIPIPRAZOLE
     Indication: PRODUCT USED FOR UNKNOWN INDICATION
     Dosage: UNK
     Route: 065
     Dates: start: 20180810, end: 20190529
  5. VALPROATE SODIUM. [Suspect]
     Active Substance: VALPROATE SODIUM
     Indication: PRODUCT USED FOR UNKNOWN INDICATION
     Dosage: 600 MG, QD
     Route: 048
     Dates: start: 20190515, end: 20190529
  6. BELSOMRA [Concomitant]
     Active Substance: SUVOREXANT
     Indication: PRODUCT USED FOR UNKNOWN INDICATION
     Dosage: UNK
     Route: 065
     Dates: start: 20190306, end: 20190529
  7. AMITIZA [Concomitant]
     Active Substance: LUBIPROSTONE
     Indication: PRODUCT USED FOR UNKNOWN INDICATION
     Dosage: 2 DF (DIVIDED INTO TWO DOSES)
     Route: 065
  8. AMITIZA [Concomitant]
     Active Substance: LUBIPROSTONE
     Dosage: 1 DF, QD
     Route: 065
     Dates: end: 20190427
  9. CEFCAPENE PIVOXIL HYDROCHLORIDE [Concomitant]
     Active Substance: CEFCAPENE PIVOXIL HYDROCHLORIDE
     Indication: PRODUCT USED FOR UNKNOWN INDICATION
     Dosage: 300 MG (DIVIDED INTO THREE DOSES)
     Route: 048
     Dates: start: 20190510, end: 20190513
  10. ZOTEPINE [Concomitant]
     Active Substance: ZOTEPINE
     Indication: PRODUCT USED FOR UNKNOWN INDICATION
     Dosage: 50 MG (DIVIDED INTO TWO DOSES)
     Route: 065
     Dates: start: 20190531
  11. REXULTI [Suspect]
     Active Substance: BREXPIPRAZOLE
     Indication: SCHIZOPHRENIA
     Dosage: 1 MG, QD
     Route: 048
     Dates: start: 20190527, end: 20190529
  12. VALPROATE SODIUM. [Suspect]
     Active Substance: VALPROATE SODIUM
     Dosage: 400 MG, QD
     Route: 048
     Dates: start: 20190422, end: 20190507
  13. VALPROATE SODIUM. [Suspect]
     Active Substance: VALPROATE SODIUM
     Dosage: 480 MG, UNK
     Route: 048
     Dates: start: 20190508, end: 20190514
  14. BELSOMRA [Concomitant]
     Active Substance: SUVOREXANT
     Dosage: 15 MG, QD
     Route: 065
     Dates: start: 20190531

REACTIONS (2)
  - Drug-induced liver injury [Fatal]
  - Sepsis [Unknown]

NARRATIVE: CASE EVENT DATE: 20190529
